FAERS Safety Report 21826690 (Version 5)
Quarter: 2023Q1

REPORT INFORMATION
  Report Type: Spontaneous
  Country: PT (occurrence: PT)
  Receive Date: 20230106
  Receipt Date: 20230223
  Transmission Date: 20230418
  Serious: Yes (Hospitalization, Other)
  Sender: FDA-Public Use
  Company Number: PT-UCBSA-2022064266

PATIENT
  Age: 78 Year
  Sex: Male

DRUGS (3)
  1. KEPPRA [Suspect]
     Active Substance: LEVETIRACETAM
     Indication: Product used for unknown indication
     Dosage: UNK
  2. ALLOPURINOL [Suspect]
     Active Substance: ALLOPURINOL
     Indication: Product used for unknown indication
     Dosage: UNK
  3. PHENYTOIN [Suspect]
     Active Substance: PHENYTOIN
     Indication: Product used for unknown indication
     Dosage: UNK

REACTIONS (15)
  - Stevens-Johnson syndrome [Recovered/Resolved with Sequelae]
  - Ulcerative keratitis [Recovered/Resolved with Sequelae]
  - Conjunctival hyperaemia [Recovered/Resolved]
  - Lymphopenia [Recovered/Resolved]
  - Mucosal inflammation [Recovered/Resolved]
  - Odynophagia [Recovered/Resolved]
  - Oropharyngeal candidiasis [Recovered/Resolved]
  - Pyrexia [Recovered/Resolved]
  - Productive cough [Recovered/Resolved]
  - Drug hypersensitivity [Unknown]
  - Skin lesion [Recovered/Resolved]
  - Cough [Unknown]
  - Pain [Unknown]
  - Photophobia [Unknown]
  - Visual acuity reduced [Unknown]
